FAERS Safety Report 10830311 (Version 1)
Quarter: 2015Q1

REPORT INFORMATION
  Report Type: Spontaneous
  Country: US (occurrence: US)
  Receive Date: 20150219
  Receipt Date: 20150219
  Transmission Date: 20150721
  Serious: Yes (Death, Hospitalization, Other)
  Sender: FDA-Public Use
  Company Number: US-IPSEN BIOPHARMACEUTICALS, INC.-2015-2238

PATIENT
  Age: 35 Month
  Sex: Female

DRUGS (8)
  1. INCRELEX [Suspect]
     Active Substance: MECASERMIN
     Indication: INSULIN RESISTANCE
     Dosage: 1200 MCG/KG/DAY
     Route: 058
  2. INCRELEX [Suspect]
     Active Substance: MECASERMIN
     Dosage: 640 MCG/KG/DAY
     Route: 058
  3. INCRELEX [Suspect]
     Active Substance: MECASERMIN
     Indication: PRODUCT USE ISSUE
     Dosage: 800 MCG/KG/DAY
     Route: 058
  4. INCRELEX [Suspect]
     Active Substance: MECASERMIN
     Dosage: 560 MCG/KG/DAY
     Route: 058
  5. INSULIN INFUSIONS/ HIGH-DOSE INSULIN [Concomitant]
     Dosage: 1.5 UNITS/KG
     Route: 042
  6. METFORMIN [Concomitant]
     Active Substance: METFORMIN HYDROCHLORIDE
     Indication: PRODUCT USED FOR UNKNOWN INDICATION
     Dosage: 30 MG/KG/DAY
     Route: 065
  7. INCRELEX [Suspect]
     Active Substance: MECASERMIN
     Dosage: 80 MCG/KG/DAY
     Route: 058
  8. INSULIN INFUSIONS/ HIGH-DOSE INSULIN [Concomitant]
     Indication: KETOSIS
     Dosage: NOT REPORTED
     Route: 058

REACTIONS (11)
  - Acute respiratory distress syndrome [Unknown]
  - Therapeutic response unexpected [Unknown]
  - Drug administered in wrong device [Unknown]
  - Product use issue [Unknown]
  - Drug ineffective for unapproved indication [Unknown]
  - Abdominal distension [Unknown]
  - Respiratory tract infection [Unknown]
  - Ovarian granulosa cell tumour [Unknown]
  - Condition aggravated [Unknown]
  - Polycystic ovaries [Unknown]
  - Death [Fatal]
